FAERS Safety Report 9083984 (Version 4)
Quarter: 2014Q2

REPORT INFORMATION
  Report Type: Report from Study
  Country: CA (occurrence: CA)
  Receive Date: 20130218
  Receipt Date: 20140623
  Transmission Date: 20141212
  Serious: Yes (Death, Hospitalization, Other)
  Sender: FDA-Public Use
  Company Number: PHHY2011CA85299

PATIENT
  Age: 54 Year
  Sex: Male

DRUGS (9)
  1. SANDOSTATIN LAR [Suspect]
     Indication: CARCINOID TUMOUR
     Dosage: 20 MG, EVERY 4 WEEKS
     Route: 030
     Dates: start: 20110922
  2. SANDOSTATIN LAR [Suspect]
     Dosage: 20 MG, ONCE A MONTH
     Route: 030
  3. SANDOSTATIN LAR [Suspect]
     Dosage: 30 MG, ONCE A MONTH
     Route: 030
     Dates: end: 20140327
  4. SANDOSTATIN (OCTREOTIDE ACETATE) [Suspect]
     Indication: CARCINOID TUMOUR
     Dosage: 100 UG, BID
     Route: 058
     Dates: start: 20131220
  5. ERBITUX [Suspect]
     Dosage: UNK UKN, EVERY WEEK
     Route: 042
     Dates: start: 20130915
  6. STIVARGA [Concomitant]
     Dosage: UNK UKN, UNK
  7. CHEMOTHERAPEUTICS [Concomitant]
     Dosage: UNK UKN, UNK
     Dates: start: 20130122
  8. CHEMOTHERAPEUTICS [Concomitant]
     Dosage: UNK
     Dates: start: 20130212
  9. BEVACIZUMAB [Concomitant]
     Dosage: UNK UKN, UNK
     Dates: start: 20130702

REACTIONS (34)
  - Carcinoid tumour [Fatal]
  - Urinary tract infection [Unknown]
  - Abasia [Unknown]
  - Feeding disorder [Unknown]
  - Terminal state [Unknown]
  - Blood pressure increased [Unknown]
  - Metastasis [Unknown]
  - Intestinal obstruction [Unknown]
  - Anal spasm [Unknown]
  - Angiotensin converting enzyme decreased [Unknown]
  - Renal pain [Unknown]
  - Testicular pain [Unknown]
  - Haematochezia [Unknown]
  - Device occlusion [Unknown]
  - Underdose [Unknown]
  - Body temperature decreased [Unknown]
  - Protein urine present [Unknown]
  - Weight decreased [Unknown]
  - Self esteem decreased [Unknown]
  - Back pain [Unknown]
  - Nail injury [Unknown]
  - Nail pigmentation [Unknown]
  - Skin induration [Unknown]
  - Musculoskeletal pain [Unknown]
  - Fatigue [Unknown]
  - Vomiting [Unknown]
  - Nausea [Unknown]
  - Constipation [Unknown]
  - Decreased appetite [Unknown]
  - Heart rate increased [Unknown]
  - Diarrhoea [Unknown]
  - Bowel movement irregularity [Unknown]
  - Rash [Unknown]
  - Abdominal pain upper [Unknown]
